FAERS Safety Report 7243022-8 (Version None)
Quarter: 2011Q1

REPORT INFORMATION
  Report Type: 
  Country: None (occurrence: None)
  Receive Date: 20110125
  Receipt Date: 20100920
  Transmission Date: 20110831
  Serious: No
  Sender: FDA-Public Use
  Company Number: US-AMGEN-KDL430459

PATIENT
  Age: 69 Year
  Sex: Female

DRUGS (11)
  1. FLUTICASONE/SALMETEROL [Concomitant]
     Dosage: UNK UNK, UNK
  2. PROLIA [Suspect]
     Indication: OSTEOPOROSIS POSTMENOPAUSAL
     Dosage: UNK UNK, UNK
     Dates: start: 20100809
  3. TIOTROPIUM BROMIDE [Concomitant]
     Dosage: UNK UNK, UNK
  4. ARTHROTEC [Concomitant]
     Dosage: UNK UNK, UNK
  5. ALBUTEROL INHALER [Concomitant]
     Dosage: UNK UNK, UNK
  6. TRAMADOL HCL [Concomitant]
     Dosage: UNK UNK, UNK
  7. FLUTICASONE PROPIONATE [Concomitant]
     Dosage: UNK UNK, UNK
  8. ALBUTEROL SULFATE [Concomitant]
     Dosage: UNK UNK, UNK
  9. MONTELUKAST SODIUM [Concomitant]
     Dosage: UNK UNK, UNK
  10. MULTIVITAMIN [Concomitant]
     Dosage: UNK UNK, UNK
  11. LOTREL [Concomitant]
     Dosage: UNK UNK, UNK

REACTIONS (1)
  - DIARRHOEA [None]
